FAERS Safety Report 5773254-7 (Version None)
Quarter: 2008Q2

REPORT INFORMATION
  Report Type: 
  Country: None (occurrence: None)
  Receive Date: 20080613
  Receipt Date: 20080613
  Transmission Date: 20081010
  Serious: Yes (Hospitalization)
  Sender: FDA-Public Use
  Company Number: None

PATIENT
  Sex: Female
  Weight: 75 kg

DRUGS (1)
  1. ZOMETA [Suspect]
     Indication: HYPERCALCAEMIA
     Dosage: 3 MG ONCE  IV  (DURATION: 1 DOSE)
     Route: 042
     Dates: start: 20080514, end: 20080514

REACTIONS (3)
  - FACIAL SPASM [None]
  - HYPOCALCAEMIA [None]
  - TETANY [None]
